FAERS Safety Report 23662295 (Version 1)
Quarter: 2024Q1

REPORT INFORMATION
  Report Type: Spontaneous
  Country: FR (occurrence: None)
  Receive Date: 20240322
  Receipt Date: 20240322
  Transmission Date: 20240410
  Serious: Yes (Other)
  Sender: FDA-Public Use
  Company Number: 2024A062942

PATIENT
  Age: 77 Year
  Sex: Female
  Weight: 59 kg

DRUGS (1)
  1. IMFINZI [Suspect]
     Active Substance: DURVALUMAB
     Indication: Breast cancer
     Route: 042
     Dates: start: 20200513, end: 20220218

REACTIONS (3)
  - Facial paralysis [Not Recovered/Not Resolved]
  - Scleroderma [Not Recovered/Not Resolved]
  - Alopecia [Not Recovered/Not Resolved]

NARRATIVE: CASE EVENT DATE: 20220408
